FAERS Safety Report 8836192 (Version 1)
Quarter: 2012Q4

REPORT INFORMATION
  Report Type: 
  Country: FR (occurrence: FR)
  Receive Date: 20121011
  Receipt Date: 20121011
  Transmission Date: 20130627
  Serious: Yes (Other)
  Sender: FDA-Public Use
  Company Number: FR-JNJFOC-20121001626

PATIENT
  Age: 30 Year
  Sex: Female

DRUGS (5)
  1. RISPERDAL [Suspect]
     Indication: PSYCHOTIC DISORDER
     Route: 048
  2. RISPERDAL [Suspect]
     Indication: PSYCHOTIC DISORDER
     Route: 048
  3. INEXIUM [Concomitant]
     Route: 065
  4. LEPTICUR [Concomitant]
     Route: 065
  5. DEPAKOTE [Concomitant]
     Route: 065

REACTIONS (2)
  - Supraventricular extrasystoles [Unknown]
  - Atrioventricular block [Unknown]
